FAERS Safety Report 8054009 (Version 2)
Quarter: 2013Q2

REPORT INFORMATION
  Report Type: Spontaneous
  Country: ES (occurrence: ES)
  Receive Date: 20110726
  Receipt Date: 20130425
  Transmission Date: 20140414
  Serious: Yes (Death, Other)
  Sender: FDA-Public Use
  Company Number: ES-RANBAXY-2011RR-46246

PATIENT
  Age: 70 Day
  Sex: Female

DRUGS (1)
  1. PARACETAMOL [Suspect]
     Indication: EXPOSURE DURING BREAST FEEDING
     Dosage: UNK
     Route: 063

REACTIONS (3)
  - Laryngitis [Unknown]
  - Bronchiolitis [Unknown]
  - Exposure during breast feeding [Unknown]
